FAERS Safety Report 6254936-X (Version None)
Quarter: 2009Q3

REPORT INFORMATION
  Report Type: 
  Country: None (occurrence: None)
  Receive Date: 20090702
  Receipt Date: 20090622
  Transmission Date: 20100115
  Serious: Yes (Other)
  Sender: FDA-Public Use
  Company Number: GB-PFIZER INC-2009209963

PATIENT

DRUGS (1)
  1. CHAMPIX [Suspect]
     Dosage: UNK

REACTIONS (3)
  - DRUG INTERACTION [None]
  - NICOTINE DEPENDENCE [None]
  - SURGERY [None]
